FAERS Safety Report 4923476-X (Version None)
Quarter: 2006Q1

REPORT INFORMATION
  Report Type: 
  Country: None (occurrence: None)
  Receive Date: 20060227
  Receipt Date: 20050606
  Transmission Date: 20060701
  Serious: No
  Sender: FDA-Public Use
  Company Number: US-BRISTOL-MYERS SQUIBB COMPANY-12994208

PATIENT
  Age: 37 Year
  Sex: Female
  Weight: 63 kg

DRUGS (2)
  1. LYSODREN [Suspect]
     Route: 061
     Dates: start: 20050501, end: 20050501
  2. LYSODREN [Suspect]
     Route: 061
     Dates: start: 20050501, end: 20050501

REACTIONS (2)
  - ACCIDENTAL EXPOSURE [None]
  - RASH [None]
